FAERS Safety Report 6664241-5 (Version None)
Quarter: 2010Q2

REPORT INFORMATION
  Report Type: 
  Country: None (occurrence: None)
  Receive Date: 20100401
  Receipt Date: 20100322
  Transmission Date: 20101027
  Serious: Yes (Other)
  Sender: FDA-Public Use
  Company Number: PHHY2010DE18113

PATIENT
  Age: 30 Year
  Sex: Male

DRUGS (3)
  1. RASILEZ [Suspect]
     Dosage: 150 MG/DAY
     Route: 048
     Dates: start: 20100101
  2. BLOPRESS PLUS [Concomitant]
     Dosage: UNK
     Route: 048
     Dates: start: 20100101
  3. NEBIVOLOL HCL [Concomitant]
     Dosage: UNK
     Route: 048

REACTIONS (2)
  - DIZZINESS [None]
  - IMPAIRED DRIVING ABILITY [None]
